FAERS Safety Report 5824463-X (Version None)
Quarter: 2008Q3

REPORT INFORMATION
  Report Type: 
  Country: None (occurrence: None)
  Receive Date: 20080728
  Receipt Date: 20080721
  Transmission Date: 20090109
  Serious: Yes (Death)
  Sender: FDA-Public Use
  Company Number: B0530199A

PATIENT
  Age: 78 Year
  Sex: Female

DRUGS (1)
  1. TYVERB [Suspect]
     Route: 048
     Dates: end: 20080316

REACTIONS (2)
  - DEATH [None]
  - GENERAL PHYSICAL HEALTH DETERIORATION [None]
